FAERS Safety Report 6265083-5 (Version None)
Quarter: 2009Q3

REPORT INFORMATION
  Report Type: 
  Country: None (occurrence: None)
  Receive Date: 20090708
  Receipt Date: 20090622
  Transmission Date: 20100115
  Serious: Yes (Life-Threatening, Hospitalization, Other)
  Sender: FDA-Public Use
  Company Number: PAR_1266_2007

PATIENT
  Age: 30 Year
  Sex: Female

DRUGS (6)
  1. IBUPROFEN [Suspect]
     Indication: DRUG USE FOR UNKNOWN INDICATION
     Dosage: (DF)
  2. NAPROXEN [Suspect]
     Indication: DRUG USE FOR UNKNOWN INDICATION
     Dosage: (DF ORAL)
     Route: 048
     Dates: start: 20050601
  3. ASPIRIN [Suspect]
     Indication: ALLERGY TEST
     Dosage: (188 MG 1X ORAL)
     Route: 048
  4. CELECOXIB [Suspect]
     Indication: ALLERGY TEST
     Dosage: (400 MG 1X)
  5. PREDNISONE TAB [Concomitant]
  6. CORTICOSTEROIDS [Concomitant]

REACTIONS (9)
  - ABDOMINAL DISCOMFORT [None]
  - ASTHMA [None]
  - DRUG HYPERSENSITIVITY [None]
  - OXYGEN SATURATION DECREASED [None]
  - PHARYNGEAL OEDEMA [None]
  - PULMONARY OEDEMA [None]
  - SHOCK [None]
  - SINUSITIS [None]
  - URTICARIA [None]
